FAERS Safety Report 5267492-X (Version None)
Quarter: 2007Q1

REPORT INFORMATION
  Report Type: 
  Country: None (occurrence: None)
  Receive Date: 20061213
  Receipt Date: 20030417
  Transmission Date: 20070707
  Serious: No
  Sender: FDA-Public Use
  Company Number: 2001UW04849

PATIENT
  Age: 73 Year
  Sex: Female
  Weight: 75.7507 kg

DRUGS (10)
  1. NOLVADEX [Suspect]
     Indication: BREAST CANCER
     Dosage: 20 MG QD PO
     Route: 048
     Dates: start: 19990422
  2. ZESTRIL [Concomitant]
  3. GLYBURIDE [Concomitant]
  4. PAXIL [Concomitant]
  5. ATENOLOL [Concomitant]
  6. FUROSEMIDE [Concomitant]
  7. NAPROSYN [Concomitant]
  8. FOSAMAX [Concomitant]
  9. HYDROCODONE [Concomitant]
  10. ARISTOSPAN [Concomitant]

REACTIONS (1)
  - CATARACT [None]
